FAERS Safety Report 25935055 (Version 1)
Quarter: 2025Q4

REPORT INFORMATION
  Report Type: Other
  Country: CA (occurrence: CA)
  Receive Date: 20251017
  Receipt Date: 20251017
  Transmission Date: 20260117
  Serious: Yes (Hospitalization)
  Sender: APOTEX
  Company Number: CA-PGRTD-E2B_08134093

PATIENT
  Age: 60 Year
  Sex: Female

DRUGS (1)
  1. ZOLEDRONIC ACID [Suspect]
     Active Substance: ZOLEDRONIC ACID
     Indication: Osteoporosis
     Dosage: 1 EVERY 12 MONTHS
     Route: 042

REACTIONS (4)
  - Hospitalisation [Unknown]
  - Walking aid user [Unknown]
  - Urinary tract infection [Unknown]
  - Treatment noncompliance [Unknown]
